FAERS Safety Report 6697615-7 (Version None)
Quarter: 2010Q2

REPORT INFORMATION
  Report Type: 
  Country: None (occurrence: None)
  Receive Date: 20100426
  Receipt Date: 20100416
  Transmission Date: 20101027
  Serious: Yes (Hospitalization)
  Sender: FDA-Public Use
  Company Number: FR-MPIJNJ-2010-01154

PATIENT

DRUGS (10)
  1. VELCADE [Suspect]
     Indication: MULTIPLE MYELOMA
     Dosage: 2 MG, UNK
     Route: 042
     Dates: start: 20091026, end: 20091123
  2. VELCADE [Suspect]
     Dosage: 2 MG, UNK
     Route: 042
     Dates: start: 20091124, end: 20091220
  3. VELCADE [Suspect]
     Dosage: 2 MG, UNK
     Route: 042
     Dates: start: 20091224, end: 20100117
  4. DEXAMETHASONE [Suspect]
     Indication: MULTIPLE MYELOMA
     Dosage: 240 MG, UNK
     Route: 048
     Dates: start: 20091026, end: 20091124
  5. DEXAMETHASONE [Suspect]
     Dosage: 480 MG, UNK
     Route: 048
     Dates: start: 20091124, end: 20091220
  6. MELPHALAN HYDROCHLORIDE [Suspect]
     Indication: MULTIPLE MYELOMA
     Dosage: 10 MG, UNK
     Route: 048
     Dates: start: 20091026, end: 20091029
  7. MELPHALAN HYDROCHLORIDE [Suspect]
     Dosage: 10 MG, UNK
     Route: 048
     Dates: start: 20091124, end: 20091127
  8. MELPHALAN HYDROCHLORIDE [Suspect]
     Dosage: 10 MG, UNK
     Route: 048
     Dates: start: 20091221, end: 20091224
  9. BACTRIM [Concomitant]
     Indication: INFECTION PROPHYLAXIS
     Route: 048
  10. ZELITREX                           /01269701/ [Concomitant]
     Indication: INFECTION PROPHYLAXIS
     Route: 048

REACTIONS (1)
  - THROMBOSIS IN DEVICE [None]
